FAERS Safety Report 14481732 (Version 1)
Quarter: 2018Q1

REPORT INFORMATION
  Report Type: Report from Study
  Country: MX (occurrence: MX)
  Receive Date: 20180202
  Receipt Date: 20180202
  Transmission Date: 20180509
  Serious: Yes (Other)
  Sender: FDA-Public Use
  Company Number: PHHY2018MX016532

PATIENT
  Sex: Male

DRUGS (1)
  1. CO-DIOVAN [Suspect]
     Active Substance: HYDROCHLOROTHIAZIDE\VALSARTAN
     Indication: PRODUCT USED FOR UNKNOWN INDICATION
     Dosage: 1 DF, (HYDROCHLOROTHIAZIDE 25 MG, VALSARTAN 320 MG), (5 YEARS AGO)
     Route: 065

REACTIONS (2)
  - Arterial occlusive disease [Unknown]
  - Drug ineffective [Unknown]
